FAERS Safety Report 9032018 (Version 1)
Quarter: 2013Q1

REPORT INFORMATION
  Report Type: Spontaneous
  Country: CA (occurrence: CA)
  Receive Date: 20130125
  Receipt Date: 20130125
  Transmission Date: 20140127
  Serious: Yes (Hospitalization, Other)
  Sender: FDA-Public Use
  Company Number: CA-PFIZER INC-2013026375

PATIENT
  Age: 65 Year
  Sex: Female

DRUGS (8)
  1. CELEBREX [Suspect]
     Indication: OSTEOARTHRITIS
     Dosage: 200 MG, 1X/DAY AS NEEDED
     Dates: start: 20000107, end: 20000118
  2. CELEBREX [Suspect]
     Dosage: 200 MG, 2X/DAY AS NEEDED
     Dates: start: 20000119, end: 200003
  3. CELEBREX [Suspect]
     Dosage: 200 MG, 1X/DAY AS NEEDED
     Dates: start: 200003, end: 200805
  4. METHYLDOPA [Concomitant]
     Indication: HYPERTENSION
     Dosage: 250 MG, 4X/DAY
     Route: 048
  5. ESTROGENS CONJUGATED [Concomitant]
     Dosage: 0.625 MG, 1X/DAY
     Route: 048
  6. MEDROXYPROGESTERONE [Concomitant]
     Dosage: 2.5 MG, 1X/DAY
     Route: 048
  7. FLOVENT [Concomitant]
     Dosage: 250 UG, (2 PUFFS DAILY)
     Route: 055
  8. SINGULAIR [Concomitant]
     Dosage: 10 MG, 1X/DAY (AT BED TIME)
     Route: 048

REACTIONS (2)
  - Embolic stroke [Unknown]
  - Atrial fibrillation [Unknown]
